FAERS Safety Report 4578763-4 (Version None)
Quarter: 2005Q1

REPORT INFORMATION
  Report Type: 
  Country: None (occurrence: None)
  Receive Date: 20050207
  Receipt Date: 20050207
  Transmission Date: 20050727
  Serious: Yes (Death)
  Sender: FDA-Public Use
  Company Number: None

PATIENT
  Age: 57 Year
  Sex: Male
  Weight: 85 kg

DRUGS (6)
  1. TNKASE [Suspect]
     Indication: MYOCARDIAL INFARCTION
     Dosage: 45MG IV X 1
     Route: 042
     Dates: start: 20050124
  2. NITROGLYCERIN [Concomitant]
  3. INTEGRILIN [Concomitant]
  4. PLAVIX [Concomitant]
  5. METOPROLOL [Concomitant]
  6. HEPARIN [Concomitant]

REACTIONS (9)
  - CARDIO-RESPIRATORY ARREST [None]
  - CEREBRAL HAEMATOMA [None]
  - CEREBRAL HAEMORRHAGE [None]
  - COMA [None]
  - GENERAL PHYSICAL HEALTH DETERIORATION [None]
  - HEADACHE [None]
  - NAUSEA [None]
  - PUPIL FIXED [None]
  - VOMITING [None]
